FAERS Safety Report 18254115 (Version 1)
Quarter: 2020Q3

REPORT INFORMATION
  Report Type: Other
  Country: SE (occurrence: SE)
  Receive Date: 20200910
  Receipt Date: 20200910
  Transmission Date: 20201103
  Serious: Yes (Disabling)
  Sender: FDA-Public Use
  Company Number: SE-ARBOR PHARMACEUTICALS, LLC-SE-2020ARB000733

PATIENT
  Age: 15 Year
  Sex: Female

DRUGS (5)
  1. TRIPTODUR [Suspect]
     Active Substance: TRIPTORELIN
  2. TRIPTODUR [Suspect]
     Active Substance: TRIPTORELIN
     Indication: OFF LABEL USE
  3. SERTRALINE [Concomitant]
     Active Substance: SERTRALINE HYDROCHLORIDE
     Indication: PRODUCT USED FOR UNKNOWN INDICATION
     Dosage: UNK
     Dates: start: 20150727, end: 2020
  4. TRIPTODUR [Suspect]
     Active Substance: TRIPTORELIN
     Indication: GENDER DYSPHORIA
     Dosage: 3.75 MG, EVERY 4 WEEKS
     Route: 058
     Dates: start: 20160412
  5. TRIPTODUR [Suspect]
     Active Substance: TRIPTORELIN

REACTIONS (2)
  - Off label use [Unknown]
  - Osteoporosis [Not Recovered/Not Resolved]

NARRATIVE: CASE EVENT DATE: 20160412
